FAERS Safety Report 20382611 (Version 1)
Quarter: 2022Q1

REPORT INFORMATION
  Report Type: Spontaneous
  Country: US (occurrence: US)
  Receive Date: 20220127
  Receipt Date: 20220127
  Transmission Date: 20220424
  Serious: Yes (Life-Threatening, Other)
  Sender: FDA-Public Use
  Company Number: US-PFIZER INC-202200101127

PATIENT
  Age: 47 Year
  Sex: Male

DRUGS (10)
  1. METHYLPREDNISOLONE SODIUM SUCCINATE [Suspect]
     Active Substance: METHYLPREDNISOLONE SODIUM SUCCINATE
     Indication: Endophthalmitis
     Dosage: 500 MG (INTRAOPERATIVELY)
     Route: 042
  2. TRIAMCINOLONE [Suspect]
     Active Substance: TRIAMCINOLONE
     Indication: Endophthalmitis
     Dosage: 4 MG (INTRAVITREAL INJECTION)
  3. PREDNISONE ACETATE [Suspect]
     Active Substance: PREDNISONE ACETATE
     Indication: Endophthalmitis
     Dosage: 1 %
     Route: 061
  4. PREDNISONE ACETATE [Suspect]
     Active Substance: PREDNISONE ACETATE
     Dosage: UNK (2-WEEK ORAL PREDNISONE TAPER POSTOPERATIVELY)
     Route: 048
  5. VANCOMYCIN [Concomitant]
     Active Substance: VANCOMYCIN
     Indication: Endophthalmitis
     Dosage: UNK (INTRAVITREAL)
  6. CEFTAZIDIME [Concomitant]
     Active Substance: CEFTAZIDIME
     Indication: Endophthalmitis
     Dosage: UNK (INJECTED)
  7. MOXIFLOXACIN [Concomitant]
     Active Substance: MOXIFLOXACIN
     Indication: Endophthalmitis
     Dosage: UNK
     Route: 048
  8. ATROPINE [Concomitant]
     Active Substance: ATROPINE
     Indication: Endophthalmitis
     Dosage: UNK (EYE DROPS)
  9. EMTRICITABINE\TENOFOVIR DISOPROXIL FUMARATE [Concomitant]
     Active Substance: EMTRICITABINE\TENOFOVIR DISOPROXIL FUMARATE
     Indication: Prophylaxis
     Dosage: UNK
  10. DOLUTEGRAVIR [Concomitant]
     Active Substance: DOLUTEGRAVIR
     Indication: Prophylaxis
     Dosage: UNK

REACTIONS (1)
  - Uveitis [Unknown]
